FAERS Safety Report 4636690-8 (Version None)
Quarter: 2005Q2

REPORT INFORMATION
  Report Type: 
  Country: None (occurrence: None)
  Receive Date: 20050415
  Receipt Date: 20050404
  Transmission Date: 20051028
  Serious: Yes (Other)
  Sender: FDA-Public Use
  Company Number: PHHO2005BR05524

PATIENT
  Age: 48 Year
  Sex: Female
  Weight: 67 kg

DRUGS (3)
  1. ZELMAC / HTF 919A [Suspect]
     Indication: IRRITABLE BOWEL SYNDROME
     Dosage: UNK, Q12H
     Route: 048
     Dates: start: 20050329, end: 20050402
  2. PAROXETINE HCL [Concomitant]
     Dates: end: 20050328
  3. SYNTHROID [Concomitant]
     Indication: HYPOTHYROIDISM

REACTIONS (12)
  - ABDOMINAL PAIN [None]
  - AMNESIA [None]
  - BONE PAIN [None]
  - CHEST PAIN [None]
  - HEADACHE [None]
  - HEMIPLEGIA [None]
  - HYPERTENSION [None]
  - INDURATION [None]
  - ISCHAEMIA [None]
  - PARAESTHESIA [None]
  - PSYCHOMOTOR AGITATION [None]
  - VOMITING [None]
